FAERS Safety Report 9060087 (Version 1)
Quarter: 2013Q1

REPORT INFORMATION
  Report Type: Report from Study
  Country: US (occurrence: US)
  Receive Date: 20130212
  Receipt Date: 20130212
  Transmission Date: 20140127
  Serious: Yes (Disabling)
  Sender: FDA-Public Use
  Company Number: US-JNJFOC-20130114165

PATIENT
  Age: 14 None
  Sex: Female
  Weight: 72.7 kg

DRUGS (17)
  1. INFLIXIMAB, RECOMBINANT [Suspect]
     Indication: INFLAMMATORY BOWEL DISEASE
     Route: 042
     Dates: start: 20120131, end: 20120419
  2. HUMIRA [Concomitant]
     Dates: start: 20120504
  3. BIRTH CONTROL PILLS [Concomitant]
  4. PREDNISONE [Concomitant]
  5. METHOTREXATE [Concomitant]
  6. FOLIC ACID [Concomitant]
  7. LANSOPRAZOLE [Concomitant]
  8. LOPERAMIDE [Concomitant]
  9. FLUDROCORTISONE [Concomitant]
  10. SODIUM CHLORIDE [Concomitant]
  11. ZOFRAN [Concomitant]
  12. SERTRALINE [Concomitant]
  13. MULTIVITAMINS [Concomitant]
  14. CALCIUM [Concomitant]
  15. VITAMIN D [Concomitant]
  16. FLORASTOR [Concomitant]
  17. FERROUS SULFATE [Concomitant]

REACTIONS (1)
  - Clostridium difficile infection [Recovered/Resolved]
